FAERS Safety Report 15847023 (Version 7)
Quarter: 2019Q3

REPORT INFORMATION
  Report Type: Spontaneous
  Country: PL (occurrence: PL)
  Receive Date: 20190121
  Receipt Date: 20190926
  Transmission Date: 20191004
  Serious: Yes (Hospitalization)
  Sender: FDA-Public Use
  Company Number: PL-AUROBINDO-AUR-APL-2019-001286

PATIENT
  Age: 52 Year
  Sex: Female

DRUGS (13)
  1. CIPROFLOXACIN. [Interacting]
     Active Substance: CIPROFLOXACIN
     Indication: EVIDENCE BASED TREATMENT
     Dosage: 1500 MILLIGRAM, ONCE A DAY
     Route: 065
  2. KETOPROFEN. [Concomitant]
     Active Substance: KETOPROFEN
     Indication: MYALGIA
     Dosage: UNK
     Route: 065
  3. CIPROFLOXACIN. [Interacting]
     Active Substance: CIPROFLOXACIN
     Indication: URINARY TRACT INFECTION
     Dosage: 1000 MILLIGRAM, ONCE A DAY, 500 MG, BID
     Route: 048
  4. ZOLPIDEM [Suspect]
     Active Substance: ZOLPIDEM TARTRATE
     Indication: MAJOR DEPRESSION
     Dosage: 10 MILLIGRAM, ONCE A DAY,BEFORE BEDTIME, EACH EVENING
     Route: 065
  5. OXYCODONE [Concomitant]
     Active Substance: OXYCODONE
     Indication: PRODUCT USED FOR UNKNOWN INDICATION
     Dosage: UNK
     Route: 065
  6. ZOLPIDEM [Suspect]
     Active Substance: ZOLPIDEM TARTRATE
     Indication: DEPRESSION
  7. DULOXETINE. [Interacting]
     Active Substance: DULOXETINE
     Indication: MAJOR DEPRESSION
     Dosage: 10 MILLIGRAM, ONCE A DAY,BEFORE BEDTIME
     Route: 065
  8. CIPROFLOXACIN. [Interacting]
     Active Substance: CIPROFLOXACIN
     Dosage: UNK
     Route: 065
  9. KETOPROFEN. [Concomitant]
     Active Substance: KETOPROFEN
     Indication: BACK PAIN
     Dosage: 150 MILLIGRAM, ONCE A DAY, 50 MG, TID
     Route: 065
  10. CEFTRIAXONE. [Concomitant]
     Active Substance: CEFTRIAXONE
     Indication: PRODUCT USED FOR UNKNOWN INDICATION
     Dosage: UNK
     Route: 065
  11. TRAMADOL. [Interacting]
     Active Substance: TRAMADOL
     Indication: BACK PAIN
     Dosage: UNK
     Route: 065
  12. TRAMADOL. [Interacting]
     Active Substance: TRAMADOL
     Indication: MYALGIA
  13. DULOXETINE. [Interacting]
     Active Substance: DULOXETINE
     Indication: DEPRESSION

REACTIONS (9)
  - Myalgia [Recovered/Resolved]
  - Hyperhidrosis [Recovered/Resolved]
  - Condition aggravated [Recovered/Resolved]
  - Urinary tract infection [Unknown]
  - Drug withdrawal syndrome [Recovered/Resolved]
  - Drug interaction [Recovered/Resolved]
  - Leukocytosis [Recovered/Resolved]
  - Drug ineffective [Recovered/Resolved]
  - Withdrawal syndrome [Unknown]
